FAERS Safety Report 16047057 (Version 1)
Quarter: 2019Q1

REPORT INFORMATION
  Report Type: Spontaneous
  Country: US (occurrence: US)
  Receive Date: 20190307
  Receipt Date: 20190307
  Transmission Date: 20190418
  Serious: Yes (Hospitalization, Other)
  Sender: FDA-Public Use
  Company Number: US-MYLANLABS-2019M1019622

PATIENT
  Age: 38 Year
  Sex: Male
  Weight: 86 kg

DRUGS (10)
  1. INDOMETACIN [Suspect]
     Active Substance: INDOMETHACIN
     Dosage: 50 MILLIGRAM, PRN
     Route: 048
  2. FOLIC ACID. [Concomitant]
     Active Substance: FOLIC ACID
     Dosage: 2 MILLIGRAM, QD
  3. CYCLOBENZAPRINE. [Concomitant]
     Active Substance: CYCLOBENZAPRINE
     Dosage: 10 MILLIGRAM, BID
  4. INDOMETACIN [Suspect]
     Active Substance: INDOMETHACIN
     Indication: ANKYLOSING SPONDYLITIS
     Dosage: 50 MILLIGRAM, QD
     Route: 048
     Dates: start: 2006
  5. HUMERA [Concomitant]
     Active Substance: ADALIMUMAB
     Dosage: 20 MILLIGRAM, ONCE EVERY OTHER WEEK
  6. AMLODIPINE BESILATE W/BENAZEPRIL [Concomitant]
     Dosage: 10MG/20MG, QD
  7. NAPROXEN. [Suspect]
     Active Substance: NAPROXEN
     Indication: ANKYLOSING SPONDYLITIS
     Dosage: 500 MILLIGRAM, BID
     Route: 048
     Dates: start: 2002, end: 2006
  8. PRILOSEC [Concomitant]
     Active Substance: OMEPRAZOLE MAGNESIUM
     Dosage: 40 MILLIGRAM, QD
  9. ZANTAC [Concomitant]
     Active Substance: RANITIDINE HYDROCHLORIDE
     Dosage: 3 DOSAGE FORM, BID
  10. CELEBREX [Suspect]
     Active Substance: CELECOXIB
     Indication: ANKYLOSING SPONDYLITIS
     Dosage: 1 DOSAGE FORM, BID
     Route: 048
     Dates: start: 2010

REACTIONS (6)
  - Product dose omission [Not Recovered/Not Resolved]
  - Gastritis [Recovered/Resolved]
  - Pain [Not Recovered/Not Resolved]
  - Internal haemorrhage [Recovered/Resolved]
  - Ulcer haemorrhage [Recovered/Resolved]
  - Abdominal discomfort [Not Recovered/Not Resolved]

NARRATIVE: CASE EVENT DATE: 2008
